FAERS Safety Report 23510838 (Version 2)
Quarter: 2024Q1

REPORT INFORMATION
  Report Type: Spontaneous
  Country: CA (occurrence: CA)
  Receive Date: 20240212
  Receipt Date: 20240216
  Transmission Date: 20240410
  Serious: Yes (Hospitalization, Other)
  Sender: FDA-Public Use
  Company Number: CA-BAXTER-2023BAX039184

PATIENT
  Sex: Female

DRUGS (5)
  1. DIANEAL [Suspect]
     Active Substance: CALCIUM CHLORIDE\DEXTROSE\MAGNESIUM CHLORIDE\SODIUM CHLORIDE\SODIUM LACTATE
     Indication: End stage renal disease
     Dosage: AS NEEDED VIA CYCLER
     Route: 033
     Dates: start: 202312, end: 202312
  2. DIANEAL [Suspect]
     Active Substance: CALCIUM CHLORIDE\DEXTROSE\MAGNESIUM CHLORIDE\SODIUM CHLORIDE\SODIUM LACTATE
     Indication: End stage renal disease
     Dosage: VIA MANUAL
     Route: 033
     Dates: start: 202305, end: 2023
  3. DIANEAL [Suspect]
     Active Substance: CALCIUM CHLORIDE\DEXTROSE\MAGNESIUM CHLORIDE\SODIUM CHLORIDE\SODIUM LACTATE
     Dosage: AS NEEDED VIA CYCLER (RE-INTRODUCED)
     Route: 033
     Dates: start: 2023
  4. DIANEAL [Suspect]
     Active Substance: CALCIUM CHLORIDE\DEXTROSE\MAGNESIUM CHLORIDE\SODIUM CHLORIDE\SODIUM LACTATE
     Indication: End stage renal disease
     Dosage: AS NEEDED VIA CYCLER
     Route: 033
     Dates: start: 2023
  5. EXTRANEAL [Suspect]
     Active Substance: CALCIUM CHLORIDE\ICODEXTRIN\MAGNESIUM CHLORIDE\SODIUM CHLORIDE\SODIUM LACTATE
     Indication: End stage renal disease
     Route: 033

REACTIONS (18)
  - Pancreatic carcinoma [Not Recovered/Not Resolved]
  - Myocardial infarction [Recovered/Resolved]
  - Renal failure [Unknown]
  - Peripheral ischaemia [Unknown]
  - Raynaud^s phenomenon [Unknown]
  - Hypoaesthesia [Unknown]
  - Hypothyroidism [Recovering/Resolving]
  - Anaemia [Recovering/Resolving]
  - Joint swelling [Recovering/Resolving]
  - Cardiac disorder [Unknown]
  - Tenderness [Unknown]
  - Therapeutic product effect increased [Unknown]
  - Fatigue [Not Recovered/Not Resolved]
  - Drug ineffective [Unknown]
  - Peripheral swelling [Recovering/Resolving]
  - Swelling [Unknown]
  - Dehydration [Recovered/Resolved]
  - Hypotension [Unknown]
